FAERS Safety Report 8676963 (Version 5)
Quarter: 2013Q2

REPORT INFORMATION
  Report Type: Spontaneous
  Country: US (occurrence: US)
  Receive Date: 20120705
  Receipt Date: 20130424
  Transmission Date: 20140414
  Serious: Yes (Hospitalization, Other)
  Sender: FDA-Public Use
  Company Number: US-009507513-2012SP034755

PATIENT
  Age: 61 Year
  Sex: Male

DRUGS (5)
  1. REBETOL [Suspect]
     Indication: HEPATITIS C
     Dosage: 1000 MG, QD
     Dates: start: 20120514, end: 20130421
  2. REBETOL [Suspect]
     Dosage: 800 MG, QD
  3. VICTRELIS [Suspect]
     Indication: HEPATITIS C
     Dosage: UNK UNK, UNKNOWN
     Route: 065
     Dates: start: 20120611, end: 20130421
  4. PEGASYS [Suspect]
     Indication: HEPATITIS C
     Dosage: 180MCG, WEEKLY
     Route: 065
     Dates: start: 20120514, end: 20130415
  5. PEGASYS [Suspect]
     Dosage: 150MCG, WEEKLY
     Route: 065

REACTIONS (31)
  - Blood pressure decreased [Unknown]
  - Rectal haemorrhage [Unknown]
  - Haematochezia [Unknown]
  - Faeces discoloured [Unknown]
  - Platelet count decreased [Unknown]
  - Red blood cell count decreased [Unknown]
  - Abdominal pain upper [Unknown]
  - Haemorrhoids [Unknown]
  - Flatulence [Unknown]
  - Lymphocyte count decreased [Unknown]
  - Memory impairment [Unknown]
  - Abdominal discomfort [Unknown]
  - Fatigue [Unknown]
  - Haemorrhoids [Unknown]
  - Constipation [Unknown]
  - Abdominal pain [Unknown]
  - Memory impairment [Unknown]
  - Nervous system disorder [Unknown]
  - Gait disturbance [Unknown]
  - Fatigue [Unknown]
  - Back pain [Unknown]
  - Musculoskeletal disorder [Unknown]
  - Disturbance in attention [Unknown]
  - Tremor [Unknown]
  - Road traffic accident [Unknown]
  - Haemoglobin decreased [Unknown]
  - Anaemia [Unknown]
  - Haemorrhage [Unknown]
  - Polyp [Unknown]
  - Asthenia [Unknown]
  - Rectal haemorrhage [Unknown]
